FAERS Safety Report 4903366-9 (Version None)
Quarter: 2006Q1

REPORT INFORMATION
  Report Type: 
  Country: None (occurrence: None)
  Receive Date: 20060206
  Receipt Date: 20060206
  Transmission Date: 20060701
  Serious: Yes (Hospitalization)
  Sender: FDA-Public Use
  Company Number: None

PATIENT
  Age: 46 Year
  Sex: Female

DRUGS (2)
  1. ULTRAVIST 300 [Suspect]
     Indication: COMPUTERISED TOMOGRAM ABDOMEN
     Dosage: 125 ML X1 IV
     Route: 042
     Dates: start: 20050815
  2. ULTRAVIST 300 [Suspect]
     Indication: COMPUTERISED TOMOGRAM THORAX
     Dosage: 125 ML X1 IV
     Route: 042
     Dates: start: 20050815

REACTIONS (4)
  - HEADACHE [None]
  - MIGRAINE [None]
  - URTICARIA [None]
  - VOMITING [None]
